FAERS Safety Report 14694843 (Version 1)
Quarter: 2018Q1

REPORT INFORMATION
  Report Type: Spontaneous
  Country: BR (occurrence: BR)
  Receive Date: 20180329
  Receipt Date: 20180329
  Transmission Date: 20180509
  Serious: Yes (Other)
  Sender: FDA-Public Use
  Company Number: BR-ELI_LILLY_AND_COMPANY-BR201803008128

PATIENT
  Sex: Female

DRUGS (1)
  1. FORTEO [Suspect]
     Active Substance: TERIPARATIDE
     Indication: ATYPICAL FRACTURE
     Dosage: UNK, UNKNOWN
     Route: 065
     Dates: start: 201711, end: 201803

REACTIONS (2)
  - Atypical fracture [Unknown]
  - Off label use [Unknown]
